FAERS Safety Report 25466824 (Version 2)
Quarter: 2025Q3

REPORT INFORMATION
  Report Type: Report from Study
  Country: US (occurrence: US)
  Receive Date: 20250623
  Receipt Date: 20250809
  Transmission Date: 20251020
  Serious: Yes (Other)
  Sender: ALEXION PHARMACEUTICALS
  Company Number: US-AstraZeneca-CH-00891618A

PATIENT
  Age: 58 Year
  Sex: Male
  Weight: 124.7 kg

DRUGS (4)
  1. CRESTOR [Suspect]
     Active Substance: ROSUVASTATIN CALCIUM
     Route: 065
  2. DAPAGLIFLOZIN [Suspect]
     Active Substance: DAPAGLIFLOZIN
     Route: 065
  3. INFLUENZA VIRUS VACCINE [Suspect]
     Active Substance: INFLUENZA VIRUS VACCINE
     Route: 065
  4. ENALAPRIL [Concomitant]
     Active Substance: ENALAPRIL
     Route: 065

REACTIONS (11)
  - Chronic kidney disease [Unknown]
  - Renal cyst [Unknown]
  - Type 2 diabetes mellitus [Unknown]
  - Anaemia [Unknown]
  - Vitamin D deficiency [Unknown]
  - Lower urinary tract symptoms [Unknown]
  - Iron deficiency anaemia [Unknown]
  - Hyperparathyroidism secondary [Unknown]
  - Obesity [Unknown]
  - Hypertension [Unknown]
  - Hyperlipidaemia [Unknown]
